FAERS Safety Report 6571232-1 (Version None)
Quarter: 2010Q1

REPORT INFORMATION
  Report Type: 
  Country: None (occurrence: None)
  Receive Date: 20100129
  Receipt Date: 20091019
  Transmission Date: 20100710
  Serious: Yes (Hospitalization)
  Sender: FDA-Public Use
  Company Number: WAES 0907FRA00101

PATIENT
  Age: 76 Year
  Sex: Male

DRUGS (6)
  1. CAP VORINOSTAT [Suspect]
     Indication: MYELODYSPLASTIC SYNDROME
     Dosage: 400 MG, PO
     Route: 048
     Dates: start: 20090722, end: 20090731
  2. CAP VORINOSTAT [Suspect]
     Indication: MYELODYSPLASTIC SYNDROME
     Dosage: 400 MG, PO
     Route: 048
     Dates: start: 20090908, end: 20090917
  3. CAP VORINOSTAT [Suspect]
     Indication: MYELODYSPLASTIC SYNDROME
     Dosage: 400 MG, PO
     Route: 048
     Dates: start: 20091006, end: 20091015
  4. CYTARABINE [Suspect]
     Indication: MYELODYSPLASTIC SYNDROME
     Dosage: SC
     Route: 058
     Dates: start: 20090707, end: 20090718
  5. CYTARABINE [Suspect]
     Indication: MYELODYSPLASTIC SYNDROME
     Dosage: SC
     Route: 058
     Dates: start: 20090824, end: 20090903
  6. CYTARABINE [Suspect]
     Indication: MYELODYSPLASTIC SYNDROME
     Dosage: SC
     Route: 058
     Dates: start: 20090922, end: 20091001

REACTIONS (7)
  - BONE MARROW FAILURE [None]
  - BRONCHOPULMONARY ASPERGILLOSIS [None]
  - CHOLESTATIC LIVER INJURY [None]
  - FEBRILE NEUTROPENIA [None]
  - HAEMATOCRIT DECREASED [None]
  - HAEMOGLOBIN DECREASED [None]
  - HYPERBILIRUBINAEMIA [None]
